FAERS Safety Report 4587290-X (Version None)
Quarter: 2005Q1

REPORT INFORMATION
  Report Type: 
  Country: None (occurrence: None)
  Receive Date: 20050215
  Receipt Date: 20050201
  Transmission Date: 20050727
  Serious: Yes (Death, Life-Threatening, Hospitalization, Disabling)
  Sender: FDA-Public Use
  Company Number: 2004AP03224

PATIENT
  Age: 75 Year
  Sex: Female
  Weight: 53.5 kg

DRUGS (11)
  1. FULVESTRANT [Suspect]
     Indication: BREAST CANCER
     Dosage: 500 MG IM
     Route: 030
     Dates: start: 20040408, end: 20040408
  2. FULVESTRANT [Suspect]
     Indication: BREAST CANCER
     Dosage: 250 MG IM
     Route: 030
     Dates: start: 20040422, end: 20040422
  3. FULVESTRANT [Suspect]
     Indication: BREAST CANCER
     Dosage: 250 MG IM
     Route: 030
     Dates: start: 20040506, end: 20040506
  4. ADRIACIN [Suspect]
     Indication: BREAST CANCER
     Dosage: 90 MG IVD
     Route: 041
     Dates: start: 20040608, end: 20040802
  5. ENDOXAN [Suspect]
     Indication: BREAST CANCER
     Dosage: 900 MG IVD
     Route: 041
     Dates: start: 20040608, end: 20040802
  6. DECADRON [Concomitant]
  7. NAUZELIN [Concomitant]
  8. DECADRON [Concomitant]
  9. KYTRIL [Concomitant]
  10. HACHIMIGAN [Concomitant]
  11. ALFAROL [Concomitant]

REACTIONS (18)
  - CEREBRAL ARTERY OCCLUSION [None]
  - CEREBRAL INFARCTION [None]
  - DEPRESSED LEVEL OF CONSCIOUSNESS [None]
  - DISEASE RECURRENCE [None]
  - DIZZINESS [None]
  - DRUG INEFFECTIVE [None]
  - ENDOCARDITIS NONINFECTIVE [None]
  - FEBRILE NEUTROPENIA [None]
  - HEMIPLEGIA [None]
  - INJECTION SITE PAIN [None]
  - LOSS OF CONSCIOUSNESS [None]
  - MALIGNANT NEOPLASM PROGRESSION [None]
  - METASTASES TO LIVER [None]
  - MONOPLEGIA [None]
  - PLEURAL EFFUSION [None]
  - THROMBOSIS [None]
  - TUMOUR EMBOLISM [None]
  - VISUAL DISTURBANCE [None]
